FAERS Safety Report 4412640-4 (Version None)
Quarter: 2004Q2

REPORT INFORMATION
  Report Type: 
  Country: None (occurrence: None)
  Receive Date: 20040630
  Receipt Date: 20040304
  Transmission Date: 20050107
  Serious: No
  Sender: FDA-Public Use
  Company Number: 04P-163-0252216-00

PATIENT
  Age: 60 Year
  Sex: Female
  Weight: 80.7403 kg

DRUGS (10)
  1. HUMIRA [Suspect]
     Indication: RHEUMATOID ARTHRITIS
     Dosage: 40 MG, 1 IN 2 WK, SUBCUTANEOUS
     Route: 058
     Dates: start: 20030901, end: 20031201
  2. METHOTREXATE [Concomitant]
  3. DIGOXIN [Concomitant]
  4. FUROSEMIDE [Concomitant]
  5. CARVEDILOL [Concomitant]
  6. DIOVAN [Concomitant]
  7. AMLODIPINE BESYLATE [Concomitant]
  8. ATORVASTATIN CALCIUM [Concomitant]
  9. FOLIC ACID [Concomitant]
  10. PANTOPRAZOLE [Concomitant]

REACTIONS (1)
  - INJECTION SITE BURNING [None]
